FAERS Safety Report 7378828-8 (Version None)
Quarter: 2011Q1

REPORT INFORMATION
  Report Type: 
  Country: None (occurrence: None)
  Receive Date: 20110328
  Receipt Date: 20110314
  Transmission Date: 20110831
  Serious: Yes (Hospitalization)
  Sender: FDA-Public Use
  Company Number: PHHY2011FR21456

PATIENT
  Sex: Male

DRUGS (1)
  1. VOLTAREN [Suspect]
     Dosage: 2 DF, UNK
     Dates: start: 20101117

REACTIONS (4)
  - VISUAL IMPAIRMENT [None]
  - MUSCLE SPASMS [None]
  - PARAESTHESIA [None]
  - VISION BLURRED [None]
